FAERS Safety Report 14753519 (Version 3)
Quarter: 2018Q2

REPORT INFORMATION
  Report Type: Spontaneous
  Country: JP (occurrence: JP)
  Receive Date: 20180412
  Receipt Date: 20180620
  Transmission Date: 20180711
  Serious: Yes (Hospitalization)
  Sender: FDA-Public Use
  Company Number: PHJP2018JP007981

PATIENT
  Sex: Female

DRUGS (1)
  1. ILARIS [Suspect]
     Active Substance: CANAKINUMAB
     Indication: FAMILIAL MEDITERRANEAN FEVER
     Dosage: 150 MG, UNK
     Route: 058
     Dates: start: 20180403, end: 20180403

REACTIONS (1)
  - Asthma [Recovered/Resolved]

NARRATIVE: CASE EVENT DATE: 20180403
